FAERS Safety Report 6131099-2 (Version None)
Quarter: 2009Q1

REPORT INFORMATION
  Report Type: 
  Country: None (occurrence: None)
  Receive Date: 20090325
  Receipt Date: 20090318
  Transmission Date: 20090719
  Serious: Yes (Other)
  Sender: FDA-Public Use
  Company Number: PHEH2007US15185

PATIENT
  Sex: Male
  Weight: 78.005 kg

DRUGS (13)
  1. ZOMETA [Suspect]
     Indication: NEOPLASM MALIGNANT
     Dosage: Q 4 WEEKS
     Route: 042
     Dates: start: 20060101
  2. ZOMETA [Suspect]
     Indication: LUNG CANCER METASTATIC
  3. LYRICA [Concomitant]
  4. GEMZAR [Concomitant]
     Dosage: UNK
     Dates: start: 20060101
  5. AVASTIN [Concomitant]
     Dosage: UNK
     Dates: start: 20060101
  6. NEXIUM [Concomitant]
     Dosage: 40 MG, UNK
  7. PROCRIT                            /00909301/ [Concomitant]
     Dosage: 10 MU/ML, UNK
  8. ALBUTEROL [Concomitant]
  9. MORPHINE [Concomitant]
     Dosage: 4 MG, UNK
  10. AMBIEN [Concomitant]
     Dosage: 5 MG, UNK
  11. ASCORBIC ACID (VIT C), INCL COMBINATIONS [Concomitant]
     Dosage: 500 MG, UNK
  12. ROXICET [Concomitant]
  13. DOCUSATE SODIUM [Concomitant]
     Dosage: 100 MG, UNK

REACTIONS (22)
  - ANHEDONIA [None]
  - ANXIETY [None]
  - BACK PAIN [None]
  - BONE DISORDER [None]
  - BONE FRAGMENTATION [None]
  - BONE LESION [None]
  - BRUXISM [None]
  - DEBRIDEMENT [None]
  - DEFORMITY [None]
  - DENTAL OPERATION [None]
  - EMOTIONAL DISTRESS [None]
  - HYPOPHAGIA [None]
  - LOOSE TOOTH [None]
  - MALOCCLUSION [None]
  - MASTICATION DISORDER [None]
  - OSTEONECROSIS [None]
  - PAIN [None]
  - PERIODONTAL DISEASE [None]
  - PRIMARY SEQUESTRUM [None]
  - TOOTH ABSCESS [None]
  - TOOTH DISORDER [None]
  - TOOTHACHE [None]
